FAERS Safety Report 15259652 (Version 1)
Quarter: 2018Q3

REPORT INFORMATION
  Report Type: Report from Study
  Country: ES (occurrence: ES)
  Receive Date: 20180809
  Receipt Date: 20180809
  Transmission Date: 20181010
  Serious: Yes (Hospitalization)
  Sender: FDA-Public Use
  Company Number: ES-PFIZER INC-2018316437

PATIENT
  Age: 13 Year
  Sex: Male
  Weight: 93 kg

DRUGS (9)
  1. METHOTREXATE SODIUM. [Suspect]
     Active Substance: METHOTREXATE SODIUM
     Indication: ACUTE LYMPHOCYTIC LEUKAEMIA
     Dosage: 2150 MG, 1X/DAY
     Route: 042
     Dates: start: 20171005, end: 20171006
  2. CYTARABINE. [Suspect]
     Active Substance: CYTARABINE
     Dosage: 4300 MG, 1X/DAY
     Route: 042
     Dates: start: 20171008, end: 20171009
  3. ERWINASE /00143501/ [Suspect]
     Active Substance: ASPARAGINASE
     Indication: ACUTE LYMPHOCYTIC LEUKAEMIA
     Dosage: 40 KIU, ALTERNATE DAY
     Route: 030
     Dates: start: 20171009, end: 20171011
  4. DEXAMETASON [Suspect]
     Active Substance: DEXAMETHASONE
     Indication: ACUTE LYMPHOCYTIC LEUKAEMIA
     Dosage: 20 MG, EVERY 12H
     Route: 042
     Dates: start: 20171004, end: 20171010
  5. VINCRISTINE SULFATE. [Suspect]
     Active Substance: VINCRISTINE SULFATE
     Indication: ACUTE LYMPHOCYTIC LEUKAEMIA
     Dosage: 2 MG, EVERY 4 DAYS
     Route: 042
     Dates: start: 20171004, end: 20171008
  6. MERCAPTOPURINE. [Suspect]
     Active Substance: MERCAPTOPURINE
     Indication: ACUTE LYMPHOCYTIC LEUKAEMIA
     Dosage: 200 MG, 1X/DAY
     Route: 048
     Dates: start: 20171004, end: 20171008
  7. CALCIUM FOLINATE [Concomitant]
     Active Substance: LEUCOVORIN CALCIUM
     Dosage: 32 MG, 1X/DAY
     Route: 042
     Dates: start: 20171005, end: 20171006
  8. ACICLOVIR ARISTO [Concomitant]
     Indication: PROPHYLAXIS
     Dosage: 400 MEQ, EVERY 8H
     Route: 048
     Dates: start: 20170615
  9. SEPTRIN [Concomitant]
     Active Substance: SULFAMETHOXAZOLE\TRIMETHOPRIM
     Indication: PROPHYLAXIS
     Dosage: 1 DF, UNK
     Route: 048
     Dates: start: 20170615

REACTIONS (3)
  - Pancytopenia [Recovered/Resolved]
  - Staphylococcal infection [Recovered/Resolved]
  - Anal inflammation [Recovered/Resolved]

NARRATIVE: CASE EVENT DATE: 20171011
